FAERS Safety Report 11783817 (Version 2)
Quarter: 2015Q4

REPORT INFORMATION
  Report Type: Spontaneous
  Country: CN (occurrence: CN)
  Receive Date: 20151127
  Receipt Date: 20151215
  Transmission Date: 20160305
  Serious: Yes (Life-Threatening, Hospitalization)
  Sender: FDA-Public Use
  Company Number: CN-ASTRAZENECA-2015SF18348

PATIENT
  Age: 73 Year
  Sex: Male

DRUGS (14)
  1. BRILINTA [Suspect]
     Active Substance: TICAGRELOR
     Indication: STENT PLACEMENT
     Route: 048
     Dates: start: 201506, end: 20150914
  2. ATORVASTATIN CALCIUM. [Concomitant]
     Active Substance: ATORVASTATIN CALCIUM
     Indication: MYOCARDIAL INFARCTION
     Route: 048
     Dates: start: 20150316
  3. ATORVASTATIN CALCIUM. [Concomitant]
     Active Substance: ATORVASTATIN CALCIUM
     Indication: STENT PLACEMENT
     Route: 048
     Dates: start: 20150316
  4. BAYASPIRIN [Concomitant]
     Active Substance: ASPIRIN
     Dates: start: 20150316
  5. BETALOC ZOK [Suspect]
     Active Substance: METOPROLOL SUCCINATE
     Indication: MYOCARDIAL INFARCTION
     Route: 048
     Dates: start: 20150316
  6. BETALOC ZOK [Suspect]
     Active Substance: METOPROLOL SUCCINATE
     Indication: STENT PLACEMENT
     Route: 048
     Dates: start: 20150316
  7. RAMIPRIL. [Concomitant]
     Active Substance: RAMIPRIL
     Indication: MYOCARDIAL INFARCTION
     Route: 048
     Dates: start: 20150316, end: 20150914
  8. BRILINTA [Suspect]
     Active Substance: TICAGRELOR
     Indication: STENT PLACEMENT
     Route: 048
     Dates: start: 20150316, end: 201505
  9. BRILINTA [Suspect]
     Active Substance: TICAGRELOR
     Indication: MYOCARDIAL INFARCTION
     Route: 048
     Dates: start: 201506, end: 20150914
  10. RAMIPRIL. [Concomitant]
     Active Substance: RAMIPRIL
     Indication: STENT PLACEMENT
     Route: 048
     Dates: start: 20150316, end: 20150914
  11. BRILINTA [Suspect]
     Active Substance: TICAGRELOR
     Indication: STENT PLACEMENT
     Route: 048
     Dates: start: 20150914
  12. BRILINTA [Suspect]
     Active Substance: TICAGRELOR
     Indication: MYOCARDIAL INFARCTION
     Route: 048
     Dates: start: 20150316, end: 201505
  13. BRILINTA [Suspect]
     Active Substance: TICAGRELOR
     Indication: MYOCARDIAL INFARCTION
     Route: 048
     Dates: start: 20150914
  14. PLAVIX [Concomitant]
     Active Substance: CLOPIDOGREL BISULFATE
     Dates: start: 201505, end: 201506

REACTIONS (5)
  - Counterfeit drug administered [Unknown]
  - Coma [Recovered/Resolved]
  - Myocardial infarction [Recovered/Resolved]
  - Blood pressure decreased [Unknown]
  - Off label use [Recovered/Resolved]

NARRATIVE: CASE EVENT DATE: 20150316
